FAERS Safety Report 25233759 (Version 2)
Quarter: 2025Q2

REPORT INFORMATION
  Report Type: Spontaneous
  Country: US (occurrence: US)
  Receive Date: 20250424
  Receipt Date: 20250507
  Transmission Date: 20250717
  Serious: Yes (Death, Other)
  Sender: UNKNOWN
  Company Number: US-OTTER-US-2025AST000159

PATIENT
  Age: 73 Year
  Sex: Female

DRUGS (12)
  1. METHOTREXATE [Suspect]
     Active Substance: METHOTREXATE
     Indication: Bladder cancer
     Dosage: 30 MILLIGRAM/SQ. METER, Q2W, 1 CYCLE OF AMVAC
     Route: 065
  2. METHOTREXATE [Suspect]
     Active Substance: METHOTREXATE
     Dosage: 30 MILLIGRAM/SQ. METER, Q2W, 2 CYCLES OF AMVAC
     Route: 065
  3. METHOTREXATE [Suspect]
     Active Substance: METHOTREXATE
     Dosage: 30 MILLIGRAM/SQ. METER, Q2W, 3 CYCLES OF AMVAC
     Route: 065
  4. VINBLASTINE [Suspect]
     Active Substance: VINBLASTINE
     Indication: Bladder cancer
     Dosage: 3 MILLIGRAM/SQ. METER, Q2W, 1 CYCLE OF AMVAC
     Route: 065
  5. VINBLASTINE [Suspect]
     Active Substance: VINBLASTINE
     Dosage: 3 MILLIGRAM/SQ. METER, Q2W, 2 CYCLE OF AMVAC
     Route: 065
  6. VINBLASTINE [Suspect]
     Active Substance: VINBLASTINE
     Dosage: 3 MILLIGRAM/SQ. METER, Q2W, 3 CYCLE OF AMVAC
     Route: 065
  7. ADRIAMYCIN [Suspect]
     Active Substance: DOXORUBICIN HYDROCHLORIDE
     Indication: Bladder cancer
     Dosage: 30 MILLIGRAM/SQ. METER, Q2W, 1 CYCLE OF AMVAC
     Route: 065
  8. ADRIAMYCIN [Suspect]
     Active Substance: DOXORUBICIN HYDROCHLORIDE
     Dosage: 30 MILLIGRAM/SQ. METER, Q2W, 2 CYCLE OF AMVAC
     Route: 065
  9. ADRIAMYCIN [Suspect]
     Active Substance: DOXORUBICIN HYDROCHLORIDE
     Dosage: 30 MILLIGRAM/SQ. METER, Q2W, 3 CYCLE OF AMVAC
     Route: 065
  10. CISPLATIN [Suspect]
     Active Substance: CISPLATIN
     Indication: Bladder cancer
     Dosage: 70 MILLIGRAM/SQ. METER, Q2W, 1 CYCLE OF AMVAC
     Route: 065
  11. CISPLATIN [Suspect]
     Active Substance: CISPLATIN
     Dosage: 70 MILLIGRAM/SQ. METER, Q2W, 2 CYCLE OF AMVAC
     Route: 065
  12. CISPLATIN [Suspect]
     Active Substance: CISPLATIN
     Dosage: 70 MILLIGRAM/SQ. METER, Q2W, 3 CYCLE OF AMVAC
     Route: 065

REACTIONS (3)
  - Sepsis [Fatal]
  - Meningitis [Unknown]
  - Off label use [Unknown]
